FAERS Safety Report 9129267 (Version 1)
Quarter: 2013Q1

REPORT INFORMATION
  Report Type: Spontaneous
  Country: RO (occurrence: RO)
  Receive Date: 20130125
  Receipt Date: 20130125
  Transmission Date: 20140127
  Serious: Yes (Other)
  Sender: FDA-Public Use
  Company Number: RO-MERCK-1301ROM010602

PATIENT
  Age: 45 Year
  Sex: Female

DRUGS (3)
  1. BOCEPREVIR [Suspect]
     Dosage: 800 MG, TID
     Route: 048
  2. RIBAVIRIN [Suspect]
     Dosage: 1000 MG, QD
     Route: 048
  3. PEGINTERFERON ALFA-2B [Suspect]
     Dosage: 120 MICROGRAM, QW

REACTIONS (1)
  - Eyelid ptosis [Unknown]
